FAERS Safety Report 9988580 (Version 2)
Quarter: 2014Q1

REPORT INFORMATION
  Report Type: Spontaneous
  Country: JP (occurrence: JP)
  Receive Date: 20140310
  Receipt Date: 20140322
  Transmission Date: 20141002
  Serious: Yes (Hospitalization)
  Sender: FDA-Public Use
  Company Number: JP-AMGEN-JPNSP2014015834

PATIENT
  Age: 78 Year
  Sex: Female
  Weight: 47 kg

DRUGS (11)
  1. ARANESP [Suspect]
     Indication: NEPHROGENIC ANAEMIA
     Dosage: 60 MUG, Q6MO
     Route: 040
     Dates: start: 20130726
  2. DIOVAN [Suspect]
     Indication: PRODUCT USED FOR UNKNOWN INDICATION
     Dosage: 80 MG, BID
     Route: 048
     Dates: start: 20020927
  3. CALBLOCK [Suspect]
     Indication: PRODUCT USED FOR UNKNOWN INDICATION
     Dosage: 8 MG, BID
     Route: 048
     Dates: start: 20071107
  4. WARFARIN [Suspect]
     Indication: PRODUCT USED FOR UNKNOWN INDICATION
     Dosage: 2.5 MG, QD
     Route: 048
     Dates: start: 20010803, end: 20131210
  5. VASOLAN /00014302/ [Suspect]
     Indication: PRODUCT USED FOR UNKNOWN INDICATION
     Dosage: 40 MG, TID
     Route: 048
     Dates: start: 20010803, end: 20131210
  6. DIGOSIN [Suspect]
     Indication: PRODUCT USED FOR UNKNOWN INDICATION
     Dosage: 0.125 MG, UNK
     Route: 048
     Dates: start: 20010803, end: 20131210
  7. FEBURIC [Concomitant]
     Dosage: 20 MG, QD
     Route: 048
     Dates: start: 20130814, end: 20131210
  8. EPADEL-S [Concomitant]
     Dosage: 900 MG, BID
     Route: 048
     Dates: start: 20130814, end: 20131210
  9. LIPITOR [Concomitant]
     Dosage: 5 MG, BID
     Route: 048
     Dates: start: 20020927, end: 20131210
  10. FERRUM                             /00023502/ [Concomitant]
     Dosage: 100 MG, QD
     Route: 048
     Dates: start: 20130814, end: 20131210
  11. LASIX                              /00032601/ [Concomitant]
     Dosage: 40 MG, BID
     Route: 048
     Dates: start: 20020824, end: 20131210

REACTIONS (2)
  - Fall [Unknown]
  - Cerebral haemorrhage [Unknown]
